FAERS Safety Report 9828768 (Version 2)
Quarter: 2014Q1

REPORT INFORMATION
  Report Type: Spontaneous
  Country: JP (occurrence: JP)
  Receive Date: 20140117
  Receipt Date: 20140131
  Transmission Date: 20141002
  Serious: Yes (Life-Threatening, Other)
  Sender: FDA-Public Use
  Company Number: JP-TAKEDA-2014TJP000634

PATIENT
  Age: 78 Year
  Sex: Female
  Weight: 55 kg

DRUGS (8)
  1. ACTOS TABLETS 30 [Suspect]
     Indication: DIABETES MELLITUS
     Dosage: 7.5 MG, QD
     Route: 048
     Dates: start: 20050303, end: 20131105
  2. PARIET [Concomitant]
     Dosage: 10 MG, QD
     Route: 048
  3. SOLANAX [Concomitant]
     Dosage: 0.4 MG, QD
     Route: 048
  4. NORVASC [Concomitant]
     Dosage: 5 MG, QD
     Route: 048
  5. CO DIO COMBINATION EX [Concomitant]
     Dosage: 1 DF, QD
     Route: 048
  6. PRAVASTATIN SODIUM [Concomitant]
     Dosage: 10 MG, QD
     Route: 048
  7. GLACTIV [Concomitant]
     Dosage: 25 MG, QD
     Route: 048
  8. LANTUS [Concomitant]
     Dosage: 4 UT, QD
     Route: 058

REACTIONS (2)
  - Ureteric cancer [Not Recovered/Not Resolved]
  - Metastases to lymph nodes [Not Recovered/Not Resolved]
